FAERS Safety Report 20350780 (Version 1)
Quarter: 2022Q1

REPORT INFORMATION
  Report Type: Spontaneous
  Country: US (occurrence: None)
  Receive Date: 20220119
  Receipt Date: 20220119
  Transmission Date: 20220424
  Serious: Yes (Other)
  Sender: FDA-Public Use
  Company Number: None

PATIENT
  Age: 84 Year
  Sex: Male
  Weight: 186.6 kg

DRUGS (2)
  1. CEFTRIAXONE [Suspect]
     Active Substance: CEFTRIAXONE
     Indication: Pneumonia
     Dosage: FREQUENCY : DAILY;?
     Route: 042
     Dates: start: 20211227, end: 20211227
  2. AZITHROMYCIN ANHYDROUS [Suspect]
     Active Substance: AZITHROMYCIN ANHYDROUS
     Indication: Pneumonia
     Dosage: FREQUENCY : DAILY;?
     Route: 042
     Dates: start: 20211227, end: 20211227

REACTIONS (8)
  - Burning sensation [None]
  - Erythema [None]
  - Hyperhidrosis [None]
  - Blood pressure decreased [None]
  - Oxygen saturation decreased [None]
  - Heart rate increased [None]
  - Adverse drug reaction [None]
  - Infusion related reaction [None]

NARRATIVE: CASE EVENT DATE: 20211227
